FAERS Safety Report 10272453 (Version 1)
Quarter: 2014Q2

REPORT INFORMATION
  Report Type: Spontaneous
  Country: US (occurrence: None)
  Receive Date: 20140630
  Receipt Date: 20140630
  Transmission Date: 20141212
  Serious: No
  Sender: FDA-Public Use
  Company Number: None

PATIENT
  Age: 71 Year
  Sex: Male
  Weight: 90.72 kg

DRUGS (2)
  1. POLY-VENT DM [Suspect]
     Indication: UPPER RESPIRATORY TRACT INFECTION
     Dosage: 1 TABLET, FOUR TIMES DAILY, TAKEN BY MOUTH
     Route: 048
     Dates: start: 20140625, end: 20140628
  2. VITAMIN C [Concomitant]

REACTIONS (3)
  - Dyspepsia [None]
  - Heart rate increased [None]
  - Urine output decreased [None]
